FAERS Safety Report 18569481 (Version 1)
Quarter: 2020Q4

REPORT INFORMATION
  Report Type: Spontaneous
  Country: US (occurrence: US)
  Receive Date: 20201202
  Receipt Date: 20201202
  Transmission Date: 20210114
  Serious: No
  Sender: FDA-Public Use
  Company Number: US-CHIESI USA, INC.-US-2020CHI000555

PATIENT

DRUGS (1)
  1. BETHKIS [Suspect]
     Active Substance: TOBRAMYCIN
     Indication: CYSTIC FIBROSIS
     Dosage: UNK, QD
     Route: 055
     Dates: start: 201901

REACTIONS (5)
  - Condition aggravated [Unknown]
  - Irritability [Unknown]
  - Headache [Unknown]
  - Inappropriate schedule of product administration [Unknown]
  - Anger [Unknown]

NARRATIVE: CASE EVENT DATE: 201901
